FAERS Safety Report 5819984-X (Version None)
Quarter: 2008Q3

REPORT INFORMATION
  Report Type: 
  Country: None (occurrence: None)
  Receive Date: 20080721
  Receipt Date: 20080711
  Transmission Date: 20090109
  Serious: Yes (Life-Threatening, Hospitalization, Other)
  Sender: FDA-Public Use
  Company Number: 2007SP024604

PATIENT
  Age: 54 Year
  Sex: Male
  Weight: 87.9978 kg

DRUGS (8)
  1. PEG-INTRON [Suspect]
     Indication: HEPATITIS C
     Dosage: 150 MCG; QW; SC
     Route: 058
     Dates: start: 20071005, end: 20071203
  2. TARIBAVIRIN [Suspect]
     Indication: HEPATITIS C
     Dosage: 2800 MG; QD;  2200 MG; QD
     Dates: start: 20071005, end: 20071127
  3. TARIBAVIRIN [Suspect]
     Indication: HEPATITIS C
     Dosage: 2800 MG; QD;  2200 MG; QD
     Dates: start: 20071128, end: 20071203
  4. CLONAZEPAM [Concomitant]
  5. MOTRIN [Concomitant]
  6. COMPAZINE [Concomitant]
  7. PREVACID [Concomitant]
  8. ZOFRAN [Concomitant]

REACTIONS (44)
  - ABDOMINAL PAIN [None]
  - ACUTE RESPIRATORY DISTRESS SYNDROME [None]
  - ARTERIOSCLEROSIS MOENCKEBERG-TYPE [None]
  - BARRETT'S OESOPHAGUS [None]
  - CANDIDIASIS [None]
  - CEREBRAL DISORDER [None]
  - COMMUNICATION DISORDER [None]
  - CONFUSIONAL STATE [None]
  - DEHYDRATION [None]
  - DELIRIUM [None]
  - DIARRHOEA [None]
  - DISORIENTATION [None]
  - DISTURBANCE IN ATTENTION [None]
  - DYSPHONIA [None]
  - ELECTROLYTE IMBALANCE [None]
  - FAECALITH [None]
  - FALL [None]
  - GASTROOESOPHAGEAL REFLUX DISEASE [None]
  - GENERAL PHYSICAL HEALTH DETERIORATION [None]
  - HYPOXIA [None]
  - INCOHERENT [None]
  - LARYNGITIS FUNGAL [None]
  - LIVER DISORDER [None]
  - MEMORY IMPAIRMENT [None]
  - MENTAL STATUS CHANGES [None]
  - METABOLIC ENCEPHALOPATHY [None]
  - MYDRIASIS [None]
  - NAUSEA [None]
  - OCCULT BLOOD POSITIVE [None]
  - PLEURAL EFFUSION [None]
  - PNEUMONIA [None]
  - PNEUMONIA ASPIRATION [None]
  - PORTAL HYPERTENSIVE GASTROPATHY [None]
  - PUPILLARY REFLEX IMPAIRED [None]
  - RESPIRATORY FAILURE [None]
  - SEPSIS [None]
  - STATUS EPILEPTICUS [None]
  - TACHYCARDIA [None]
  - TACHYPNOEA [None]
  - TREMOR [None]
  - ULCER [None]
  - UNRESPONSIVE TO STIMULI [None]
  - UPPER GASTROINTESTINAL HAEMORRHAGE [None]
  - VOCAL CORD DISORDER [None]
